FAERS Safety Report 15643628 (Version 1)
Quarter: 2018Q4

REPORT INFORMATION
  Report Type: Spontaneous
  Country: US (occurrence: US)
  Receive Date: 20181121
  Receipt Date: 20181121
  Transmission Date: 20190205
  Serious: Yes (Other)
  Sender: FDA-Public Use
  Company Number: US-ALLERGAN-1853944US

PATIENT
  Age: 22 Year
  Sex: Female

DRUGS (3)
  1. EFFEXOR [Concomitant]
     Active Substance: VENLAFAXINE HYDROCHLORIDE
  2. TRAZODONE [Concomitant]
     Active Substance: TRAZODONE HYDROCHLORIDE
  3. VRAYLAR [Suspect]
     Active Substance: CARIPRAZINE
     Indication: BIPOLAR I DISORDER
     Dosage: 1.5 MG, UNK
     Route: 065
     Dates: start: 20181108, end: 20181115

REACTIONS (5)
  - Dizziness [Unknown]
  - Muscle spasms [Unknown]
  - Somnolence [Unknown]
  - Confusional state [Unknown]
  - Heart rate increased [Unknown]

NARRATIVE: CASE EVENT DATE: 201811
